FAERS Safety Report 9476126 (Version 2)
Quarter: 2013Q3

REPORT INFORMATION
  Report Type: Spontaneous
  Country: GB (occurrence: None)
  Receive Date: 20130821
  Receipt Date: 20130829
  Transmission Date: 20140515
  Serious: Yes (Hospitalization)
  Sender: FDA-Public Use
  Company Number: AUR-APL-2013-06741

PATIENT
  Age: 56 Year
  Sex: Female
  Weight: 80 kg

DRUGS (8)
  1. RAMIPRIL [Suspect]
     Indication: HYPERTENSION
     Dosage: (5 MG, 1 IN 1 D)
     Route: 048
     Dates: start: 20130125, end: 20130201
  2. CHLORHEXIDINE (CHLORHEXIDINE) [Concomitant]
  3. CLONIDINE (CLONIDINE) [Concomitant]
  4. DOCUSATE (DOCUSATE) [Concomitant]
  5. ORAMORPH (MORPHINE SULFATE PENTAHYDRATE) [Concomitant]
  6. PROPOFOL (PROPOFOL) [Concomitant]
  7. REMIFENTANIL (REMIFENTANIL) [Concomitant]
  8. SENNA (SENNA ALEXANDRINA) [Concomitant]

REACTIONS (5)
  - Angioedema [None]
  - Lip swelling [None]
  - Swollen tongue [None]
  - Anaphylactic reaction [None]
  - Wheezing [None]
